FAERS Safety Report 8836466 (Version 1)
Quarter: 2012Q4

REPORT INFORMATION
  Report Type: 
  Country: US (occurrence: US)
  Receive Date: 20121011
  Receipt Date: 20121011
  Transmission Date: 20130627
  Serious: Yes (Other)
  Sender: FDA-Public Use
  Company Number: US-ASTRAZENECA-2012SE76272

PATIENT
  Age: 748 Month
  Sex: Male
  Weight: 104.3 kg

DRUGS (9)
  1. NEXIUM EERD [Suspect]
     Route: 048
     Dates: start: 201103, end: 20120923
  2. LISINOPRIL HCTZ [Suspect]
     Indication: HYPERTENSION
     Dosage: 20 MG OR 25 MG, DAILY
     Route: 048
     Dates: start: 201103
  3. METOPROLOL TARTRATE [Suspect]
     Indication: HYPERTENSION
     Route: 048
     Dates: start: 201103
  4. AMLODIPINE [Concomitant]
     Indication: HYPERTENSION
     Route: 048
     Dates: start: 201103
  5. LEVOTHYROXINE [Concomitant]
     Indication: THYROID DISORDER
     Dosage: 75 MCG DAILY
     Route: 048
     Dates: start: 201208
  6. FOLIC ACID [Concomitant]
     Indication: FOLATE DEFICIENCY
     Route: 048
     Dates: start: 201103
  7. SERTRALINE HCL [Concomitant]
     Indication: HYPERTENSION
     Route: 048
     Dates: start: 201103
  8. FISH OIL [Concomitant]
     Route: 048
     Dates: start: 201208
  9. PRAVASTATIN [Concomitant]
     Indication: HYPERCHOLESTEROLAEMIA
     Route: 048
     Dates: start: 201108

REACTIONS (6)
  - Prostate cancer [Unknown]
  - Thyroid disorder [Unknown]
  - Prostatic disorder [Unknown]
  - Stress [Unknown]
  - Eructation [Unknown]
  - Intentional drug misuse [Unknown]
